FAERS Safety Report 5375979-4 (Version None)
Quarter: 2007Q3

REPORT INFORMATION
  Report Type: 
  Country: None (occurrence: None)
  Receive Date: 20070702
  Receipt Date: 20070621
  Transmission Date: 20080115
  Serious: Yes (Hospitalization)
  Sender: FDA-Public Use
  Company Number: NL-JNJFOC-20070605050

PATIENT
  Sex: Male

DRUGS (4)
  1. BLINDED; INFLIXIMAB, RECOMBINANT [Suspect]
     Indication: RHEUMATOID ARTHRITIS
     Route: 042
  2. NEXIUM [Concomitant]
     Indication: GASTROINTESTINAL DISORDER THERAPY
  3. CELEBREX [Concomitant]
     Indication: PAIN
  4. SALAZOPYRINE [Concomitant]

REACTIONS (2)
  - HOSPITALISATION [None]
  - LIVING IN RESIDENTIAL INSTITUTION [None]
